FAERS Safety Report 5810629-1 (Version None)
Quarter: 2008Q3

REPORT INFORMATION
  Report Type: 
  Country: None (occurrence: None)
  Receive Date: 20080710
  Receipt Date: 20080702
  Transmission Date: 20090109
  Serious: Yes (Hospitalization)
  Sender: FDA-Public Use
  Company Number: APP200800601

PATIENT
  Sex: Female

DRUGS (4)
  1. XYLOCAINE [Suspect]
     Indication: BACK INJURY
     Dosage: 5 ML, ONCE INTRAMUSCULAR
     Route: 030
     Dates: start: 20080623, end: 20080623
  2. XYLOCAINE [Suspect]
     Indication: SCIATICA
     Dosage: 5 ML, ONCE INTRAMUSCULAR
     Route: 030
     Dates: start: 20080623, end: 20080623
  3. DEPO-MEDROL [Suspect]
     Indication: BACK INJURY
     Dosage: 1 ML, ONCE, INTRAMUSCULAR
     Route: 030
     Dates: start: 20080623, end: 20080623
  4. DEPO-MEDROL [Suspect]
     Indication: SCIATICA
     Dosage: 1 ML, ONCE, INTRAMUSCULAR
     Route: 030
     Dates: start: 20080623, end: 20080623

REACTIONS (1)
  - CELLULITIS [None]
